FAERS Safety Report 17121741 (Version 2)
Quarter: 2020Q2

REPORT INFORMATION
  Report Type: Report from Study
  Country: IT (occurrence: IT)
  Receive Date: 20191206
  Receipt Date: 20200626
  Transmission Date: 20200713
  Serious: Yes (Other)
  Sender: FDA-Public Use
  Company Number: PHHY2014IT070761

PATIENT
  Age: 41 Year
  Sex: Male
  Weight: 85 kg

DRUGS (1)
  1. GILENYA [Suspect]
     Active Substance: FINGOLIMOD HYDROCHLORIDE
     Indication: MULTIPLE SCLEROSIS
     Dosage: 1 DF, QD
     Route: 048
     Dates: start: 20121212

REACTIONS (11)
  - Photopsia [Unknown]
  - Cough [Unknown]
  - Pertussis [Recovered/Resolved]
  - Tracheitis [Unknown]
  - Aspartate aminotransferase increased [Unknown]
  - Anxiety [Unknown]
  - Tracheitis [Recovered/Resolved]
  - Retinal haemorrhage [Recovered/Resolved]
  - Alanine aminotransferase increased [Unknown]
  - Petechiae [Recovered/Resolved]
  - White blood cell count increased [Unknown]

NARRATIVE: CASE EVENT DATE: 201311
